FAERS Safety Report 5395014-1 (Version None)
Quarter: 2007Q3

REPORT INFORMATION
  Report Type: 
  Country: None (occurrence: None)
  Receive Date: 20070713
  Receipt Date: 20070503
  Transmission Date: 20080115
  Serious: Yes (Hospitalization)
  Sender: FDA-Public Use
  Company Number: US-JNJFOC-20061101242

PATIENT
  Age: 28 Year
  Sex: Female
  Weight: 93.441 kg

DRUGS (1)
  1. ORTHO EVRA [Suspect]
     Indication: DRUG USE FOR UNKNOWN INDICATION
     Dosage: TRANSDERMAL
     Route: 062
     Dates: start: 20041005, end: 20060911

REACTIONS (2)
  - DEEP VEIN THROMBOSIS [None]
  - THROMBOCYTHAEMIA [None]
